FAERS Safety Report 14243080 (Version 2)
Quarter: 2017Q4

REPORT INFORMATION
  Report Type: Spontaneous
  Country: DE (occurrence: DE)
  Receive Date: 20171201
  Receipt Date: 20171215
  Transmission Date: 20180321
  Serious: Yes (Other)
  Sender: FDA-Public Use
  Company Number: DE-009507513-1711DEU013186

PATIENT
  Sex: Male

DRUGS (4)
  1. DIFICLIR [Suspect]
     Active Substance: FIDAXOMICIN
     Indication: MEGACOLON
  2. FIDAXOMICIN [Suspect]
     Active Substance: FIDAXOMICIN
     Indication: MEGACOLON
  3. FIDAXOMICIN [Suspect]
     Active Substance: FIDAXOMICIN
     Indication: CLOSTRIDIUM DIFFICILE INFECTION
     Dosage: UNK UNK, UNKNOWN FREQ.
     Route: 065
     Dates: start: 20171111, end: 20171121
  4. DIFICLIR [Suspect]
     Active Substance: FIDAXOMICIN
     Indication: CLOSTRIDIUM DIFFICILE INFECTION
     Dosage: UNK UNK, UNKNOWN FREQ.
     Route: 065
     Dates: start: 20171111, end: 20171121

REACTIONS (2)
  - Gastrointestinal disorder [Unknown]
  - Product quality issue [Unknown]

NARRATIVE: CASE EVENT DATE: 201711
